FAERS Safety Report 14038974 (Version 1)
Quarter: 2017Q4

REPORT INFORMATION
  Report Type: Spontaneous
  Country: US (occurrence: US)
  Receive Date: 20171004
  Receipt Date: 20171004
  Transmission Date: 20180321
  Serious: Yes (Hospitalization)
  Sender: FDA-Public Use
  Company Number: US-PERRIGO-17US027189

PATIENT
  Age: 0 Year
  Sex: Male

DRUGS (2)
  1. UNISOM SLEEP [Suspect]
     Active Substance: DOXYLAMINE SUCCINATE
     Indication: FOETAL EXPOSURE DURING PREGNANCY
     Dosage: UNKNOWN, UNKNOWN
     Route: 064
     Dates: end: 20170305
  2. UNISOM SLEEPTABS [Suspect]
     Active Substance: DOXYLAMINE SUCCINATE
     Indication: FOETAL EXPOSURE DURING PREGNANCY
     Dosage: UNKNOWN, UNKNOWN
     Route: 064
     Dates: start: 201610, end: 20170305

REACTIONS (5)
  - Foetal exposure during pregnancy [Recovered/Resolved]
  - Respiratory distress [Unknown]
  - Maternal drugs affecting foetus [None]
  - Premature separation of placenta [None]
  - Neonatal aspiration [None]

NARRATIVE: CASE EVENT DATE: 201610
